FAERS Safety Report 10531645 (Version 3)
Quarter: 2015Q1

REPORT INFORMATION
  Report Type: Spontaneous
  Country: BR (occurrence: BR)
  Receive Date: 20141021
  Receipt Date: 20150202
  Transmission Date: 20150720
  Serious: Yes (Other)
  Sender: FDA-Public Use
  Company Number: BR-PFIZER INC-2014288398

PATIENT
  Age: 83 Year
  Sex: Male

DRUGS (2)
  1. ATENOLOL. [Suspect]
     Active Substance: ATENOLOL
     Dosage: 25 MG, DAILY
     Route: 048
  2. ATENOLOL. [Suspect]
     Active Substance: ATENOLOL
     Dosage: 3 DF, SINGLE
     Route: 048
     Dates: start: 20141009, end: 20141009

REACTIONS (6)
  - Overdose [Recovered/Resolved]
  - Chest discomfort [Recovered/Resolved]
  - Parkinson^s disease [Recovering/Resolving]
  - Feeling cold [Recovered/Resolved]
  - Malaise [Recovered/Resolved]
  - Back pain [Not Recovered/Not Resolved]

NARRATIVE: CASE EVENT DATE: 20141009
